FAERS Safety Report 8318039-2 (Version None)
Quarter: 2012Q2

REPORT INFORMATION
  Report Type: 
  Country: None (occurrence: None)
  Receive Date: 20120427
  Receipt Date: 20120418
  Transmission Date: 20120825
  Serious: Yes (Other)
  Sender: FDA-Public Use
  Company Number: US-ASTRAZENECA-2010SE41507

PATIENT
  Age: 64 Year
  Sex: Male

DRUGS (2)
  1. NEXIUM [Suspect]
     Route: 048
  2. CRESTOR [Suspect]
     Route: 048

REACTIONS (4)
  - MALAISE [None]
  - THROAT CANCER [None]
  - THROMBOSIS IN DEVICE [None]
  - MEMORY IMPAIRMENT [None]
